FAERS Safety Report 10430660 (Version 1)
Quarter: 2014Q3

REPORT INFORMATION
  Report Type: Spontaneous
  Country: US (occurrence: None)
  Receive Date: 20140903
  Receipt Date: 20140903
  Transmission Date: 20150326
  Serious: No
  Sender: FDA-Public Use
  Company Number: None

PATIENT
  Age: 54 Year
  Sex: Female

DRUGS (1)
  1. COPAXONE [Suspect]
     Active Substance: GLATIRAMER ACETATE
     Indication: MULTIPLE SCLEROSIS
     Dosage: 40 MG, TIW, SQ
     Dates: start: 20140306

REACTIONS (5)
  - Cognitive disorder [None]
  - Eye disorder [None]
  - Memory impairment [None]
  - Hypoaesthesia [None]
  - Impaired driving ability [None]

NARRATIVE: CASE EVENT DATE: 20140315
